FAERS Safety Report 9888251 (Version 3)
Quarter: 2014Q1

REPORT INFORMATION
  Report Type: Report from Study
  Country: FR (occurrence: FR)
  Receive Date: 20140211
  Receipt Date: 20140319
  Transmission Date: 20141002
  Serious: Yes (Disabling)
  Sender: FDA-Public Use
  Company Number: FR-PFIZER INC-2013195304

PATIENT
  Age: 74 Year
  Sex: Male

DRUGS (6)
  1. SUNITINIB MALATE [Suspect]
     Indication: HEPATOCELLULAR CARCINOMA
     Dosage: 12.5 MG, 3X/DAY
     Route: 048
     Dates: start: 20130612, end: 20130627
  2. COVERSYL [Concomitant]
     Indication: HYPERTENSION
     Dosage: 5 MG, UNK
  3. TEMERIT [Concomitant]
     Indication: HYPERTENSION
     Dosage: 5 MG, UNK
  4. KARDEGIC [Concomitant]
     Indication: PLATELET AGGREGATION
     Dosage: 75 MG, UNK
  5. CRESTOR [Concomitant]
     Indication: BLOOD CHOLESTEROL ABNORMAL
     Dosage: 5 MG, UNK
  6. SEROPLEX [Concomitant]
     Indication: DEPRESSION
     Dosage: 10 MG, UNK

REACTIONS (1)
  - Hypoacusis [Recovered/Resolved]
